FAERS Safety Report 9194183 (Version 3)
Quarter: 2013Q2

REPORT INFORMATION
  Report Type: Report from Study
  Country: BR (occurrence: BR)
  Receive Date: 20130327
  Receipt Date: 20130507
  Transmission Date: 20140414
  Serious: Yes (Other)
  Sender: FDA-Public Use
  Company Number: PHHO2011BR02994

PATIENT
  Age: 62 Year
  Sex: Male

DRUGS (5)
  1. CYCLOSPORIN [Suspect]
     Indication: RENAL TRANSPLANT
     Dosage: 175 MG, QD
     Route: 048
     Dates: start: 20100310, end: 20110203
  2. CYCLOSPORIN [Suspect]
     Dosage: 150 MG DAILY
     Route: 048
     Dates: start: 20110204
  3. CYCLOSPORIN [Suspect]
     Dosage: 50 MG DAILY
     Route: 048
     Dates: start: 20130222
  4. PREDNISONE [Suspect]
     Indication: RENAL TRANSPLANT
     Dosage: 5 MG
     Route: 048
     Dates: start: 20071120
  5. CELLCEPT [Suspect]
     Indication: RENAL TRANSPLANT
     Dosage: 1500 MG
     Route: 065
     Dates: start: 20110309

REACTIONS (3)
  - Squamous cell carcinoma [Recovered/Resolved]
  - Skin ulcer [Recovered/Resolved]
  - Malignant melanoma [Not Recovered/Not Resolved]
